FAERS Safety Report 8846741 (Version 2)
Quarter: 2014Q2

REPORT INFORMATION
  Report Type: Spontaneous
  Country: US (occurrence: US)
  Receive Date: 20121017
  Receipt Date: 20131024
  Transmission Date: 20141212
  Serious: Yes (Other)
  Sender: FDA-Public Use
  Company Number: US-PFIZER INC-2012258022

PATIENT
  Age: 48 Year
  Sex: Female
  Weight: 56.69 kg

DRUGS (2)
  1. DILANTIN [Suspect]
     Indication: EPILEPSY
     Dosage: FOUR CAPSULES 100 MG, 1X/DAY
     Route: 048
     Dates: end: 201210
  2. PHENOBARBITAL [Concomitant]
     Dosage: UNK

REACTIONS (1)
  - Convulsion [Unknown]
